FAERS Safety Report 7644508-4 (Version None)
Quarter: 2011Q3

REPORT INFORMATION
  Report Type: 
  Country: None (occurrence: None)
  Receive Date: 20110725
  Receipt Date: 20110714
  Transmission Date: 20111222
  Serious: Yes (Other)
  Sender: FDA-Public Use
  Company Number: DEP_00499_2011

PATIENT
  Age: 61 Year
  Sex: Male

DRUGS (7)
  1. HYDROCHLOROTHIAZIDE [Concomitant]
  2. METFORMIN HCL [Suspect]
     Indication: TYPE 2 DIABETES MELLITUS
     Dosage: (500 MG BID ORAL)
     Route: 048
     Dates: start: 20070101, end: 20070101
  3. GLYBURIDE [Concomitant]
  4. SIMVASTATIN [Concomitant]
  5. METOPROLOL TARTRATE [Concomitant]
  6. NIASPAN [Concomitant]
  7. LISINOPRIL [Concomitant]

REACTIONS (5)
  - HEPATIC STEATOSIS [None]
  - NAUSEA [None]
  - HEPATOTOXICITY [None]
  - WEIGHT DECREASED [None]
  - HYPOPHAGIA [None]
